FAERS Safety Report 4626793-6 (Version None)
Quarter: 2005Q2

REPORT INFORMATION
  Report Type: 
  Country: None (occurrence: None)
  Receive Date: 20050401
  Receipt Date: 20050401
  Transmission Date: 20051028
  Serious: Yes (Other)
  Sender: FDA-Public Use
  Company Number: None

PATIENT

DRUGS (2)
  1. FENTANYL [Suspect]
     Indication: BACK PAIN
     Dosage: 75 MCG Q 3D
     Route: 062
     Dates: start: 20041209
  2. FENTANYL [Suspect]
     Indication: RADICULOPATHY
     Dosage: 75 MCG Q 3D
     Route: 062
     Dates: start: 20041209

REACTIONS (5)
  - INADEQUATE ANALGESIA [None]
  - INSOMNIA [None]
  - MEDICATION ERROR [None]
  - NAUSEA [None]
  - PHARMACEUTICAL PRODUCT COMPLAINT [None]
